FAERS Safety Report 5487888-0 (Version None)
Quarter: 2007Q3

REPORT INFORMATION
  Report Type: 
  Country: None (occurrence: None)
  Receive Date: 20070925
  Receipt Date: 20070813
  Transmission Date: 20080115
  Serious: No
  Sender: FDA-Public Use
  Company Number: 2007US001374

PATIENT
  Age: 62 Year
  Sex: Female

DRUGS (3)
  1. VESICARE [Suspect]
     Indication: POLLAKIURIA
     Dosage: 5 MG, ORAL
     Route: 048
     Dates: start: 20070101
  2. VYTORIN [Concomitant]
  3. BONIVA (IBANDRONATE SODIUM) [Concomitant]

REACTIONS (4)
  - ACNE [None]
  - DRY MOUTH [None]
  - DRY SKIN [None]
  - VISION BLURRED [None]
